FAERS Safety Report 19735545 (Version 1)
Quarter: 2021Q3

REPORT INFORMATION
  Report Type: Spontaneous
  Country: US (occurrence: US)
  Receive Date: 20210823
  Receipt Date: 20210823
  Transmission Date: 20211014
  Serious: No
  Sender: FDA-Public Use
  Company Number: US-PFIZER INC-2021670159

PATIENT
  Age: 62 Year
  Sex: Female
  Weight: 72.57 kg

DRUGS (9)
  1. QUETIAPINE. [Suspect]
     Active Substance: QUETIAPINE
     Indication: BIPOLAR DISORDER
  2. XELJANZ XR [Suspect]
     Active Substance: TOFACITINIB CITRATE
     Indication: PSORIATIC ARTHROPATHY
     Dosage: 11 MG, DAILY
     Route: 048
     Dates: start: 20210329
  3. METHOCARBAMOL. [Suspect]
     Active Substance: METHOCARBAMOL
     Indication: NERVE COMPRESSION
  4. QUETIAPINE. [Suspect]
     Active Substance: QUETIAPINE
     Indication: POST-TRAUMATIC STRESS DISORDER
     Dosage: 150 MG, 1X/DAY [ONE AT BEDTIME BY MOUTH]
     Route: 048
     Dates: start: 20161209
  5. METHOCARBAMOL. [Suspect]
     Active Substance: METHOCARBAMOL
     Indication: PHANTOM LIMB SYNDROME
     Dosage: 750 MG, AS NEEDED [750MG TWICE A DAY AS NEEDED BY MOUTH]
     Route: 048
     Dates: start: 202105
  6. PLAQUENIL [Concomitant]
     Active Substance: HYDROXYCHLOROQUINE SULFATE
     Indication: INFLAMMATION
     Dosage: UNK
     Dates: start: 19981017
  7. PROLIA [Concomitant]
     Active Substance: DENOSUMAB
     Dosage: UNK, CYCLIC [INJECTED EVERY 6 MONTHS IN HER SPINE]
     Route: 037
  8. ORENCIA [Concomitant]
     Active Substance: ABATACEPT
     Dosage: UNK
  9. PLAQUENIL [Concomitant]
     Active Substance: HYDROXYCHLOROQUINE SULFATE
     Dosage: UNK
     Dates: start: 20160428

REACTIONS (4)
  - Rhinorrhoea [Unknown]
  - Productive cough [Unknown]
  - Oropharyngeal pain [Unknown]
  - Toothache [Unknown]

NARRATIVE: CASE EVENT DATE: 20210406
